FAERS Safety Report 10980062 (Version 2)
Quarter: 2015Q2

REPORT INFORMATION
  Report Type: Spontaneous
  Country: AU (occurrence: AU)
  Receive Date: 20150402
  Receipt Date: 20150403
  Transmission Date: 20150821
  Serious: Yes (Hospitalization)
  Sender: FDA-Public Use
  Company Number: AU-ABBVIE-15P-008-1370966-00

PATIENT
  Sex: Male

DRUGS (1)
  1. EPILIM [Suspect]
     Active Substance: VALPROATE SODIUM
     Indication: SEIZURE
     Route: 065

REACTIONS (9)
  - Drug administration error [Unknown]
  - Mouth ulceration [Unknown]
  - Gastrointestinal haemorrhage [Unknown]
  - Dehydration [Unknown]
  - Melaena [Unknown]
  - Gastric ulcer [Unknown]
  - Autism [Unknown]
  - Hypernatraemia [Unknown]
  - Cardiac failure [Unknown]
